FAERS Safety Report 13206682 (Version 1)
Quarter: 2017Q1

REPORT INFORMATION
  Report Type: Report from Study
  Country: US (occurrence: US)
  Receive Date: 20170208
  Receipt Date: 20170208
  Transmission Date: 20170428
  Serious: No
  Sender: FDA-Public Use
  Company Number: US-AMGEN-USASL2016136245

PATIENT
  Age: 3 Year
  Sex: Male

DRUGS (1)
  1. NEULASTA [Suspect]
     Active Substance: PEGFILGRASTIM
     Indication: PRODUCT USED FOR UNKNOWN INDICATION
     Dosage: 1.4 MG, AFTER CHEMO
     Route: 065
     Dates: start: 201607

REACTIONS (3)
  - Electrolyte imbalance [Unknown]
  - Ill-defined disorder [Unknown]
  - Nausea [Unknown]

NARRATIVE: CASE EVENT DATE: 2016
